FAERS Safety Report 21401801 (Version 1)
Quarter: 2022Q3

REPORT INFORMATION
  Report Type: Spontaneous
  Country: US (occurrence: None)
  Receive Date: 20220930
  Receipt Date: 20220930
  Transmission Date: 20221027
  Serious: No
  Sender: FDA-Public Use
  Company Number: None

PATIENT
  Age: 74 Year
  Sex: Male
  Weight: 83.91 kg

DRUGS (10)
  1. PEGASYS [Suspect]
     Active Substance: PEGINTERFERON ALFA-2A
     Indication: Polycythaemia vera
     Dosage: OTHER STRENGTH : 180/0.5 UG/ML;?FREQUENCY : WEEKLY;?
     Route: 058
     Dates: start: 202206
  2. ASPIRIN [Concomitant]
     Active Substance: ASPIRIN
  3. AMLODIPINE BESYLATE [Concomitant]
     Active Substance: AMLODIPINE BESYLATE
  4. VITAMIN D3 [Concomitant]
     Active Substance: CHOLECALCIFEROL
  5. FENOFIBRATE [Concomitant]
     Active Substance: FENOFIBRATE
  6. HYDROXYUREA [Concomitant]
     Active Substance: HYDROXYUREA
  7. LISINOPRIL [Concomitant]
     Active Substance: LISINOPRIL
  8. MAGNESIUM [Concomitant]
     Active Substance: MAGNESIUM
  9. PANTOPRAZOLE [Concomitant]
     Active Substance: PANTOPRAZOLE
  10. TAMSULOSIN HYDROCHLORIDE [Concomitant]
     Active Substance: TAMSULOSIN HYDROCHLORIDE

REACTIONS (1)
  - Suicidal ideation [None]
